FAERS Safety Report 25094750 (Version 1)
Quarter: 2025Q1

REPORT INFORMATION
  Report Type: Spontaneous
  Country: US (occurrence: None)
  Receive Date: 20250318
  Receipt Date: 20250318
  Transmission Date: 20250409
  Serious: Yes (Other)
  Sender: FDA-CTU
  Company Number: None

PATIENT

DRUGS (27)
  1. VICTOZA [Suspect]
     Active Substance: LIRAGLUTIDE
  2. LANTUS [Concomitant]
     Active Substance: INSULIN GLARGINE
  3. NOVOLOG [Concomitant]
     Active Substance: INSULIN ASPART
  4. VICTOZA [Concomitant]
     Active Substance: LIRAGLUTIDE
  5. METOPROLOL [Concomitant]
     Active Substance: METOPROLOL
  6. TOPAMAX [Concomitant]
     Active Substance: TOPIRAMATE
  7. PREDNISONE [Concomitant]
     Active Substance: PREDNISONE
  8. OMEPRAZOLE [Concomitant]
     Active Substance: OMEPRAZOLE
  9. ADDERALL [Concomitant]
     Active Substance: AMPHETAMINE ASPARTATE\AMPHETAMINE SULFATE\DEXTROAMPHETAMINE SACCHARATE\DEXTROAMPHETAMINE SULFATE
  10. XANAX [Concomitant]
     Active Substance: ALPRAZOLAM
  11. AMBIEN [Concomitant]
     Active Substance: ZOLPIDEM TARTRATE
  12. LIDOCAINE [Concomitant]
     Active Substance: LIDOCAINE
  13. SUMATRIPTAN [Concomitant]
     Active Substance: SUMATRIPTAN
  14. NURTEC ODT [Concomitant]
     Active Substance: RIMEGEPANT SULFATE
  15. TRAMADOL [Concomitant]
     Active Substance: TRAMADOL
  16. onadesteron sublingual [Concomitant]
  17. aluterol inhaler [Concomitant]
  18. ALBUTEROL [Concomitant]
     Active Substance: ALBUTEROL
  19. budesonide nasal rinse [Concomitant]
  20. UNSPECIFIED INGREDIENT [Concomitant]
     Active Substance: UNSPECIFIED INGREDIENT
  21. ZANAFLEX [Concomitant]
     Active Substance: TIZANIDINE HYDROCHLORIDE
  22. ZOLOFT [Concomitant]
     Active Substance: SERTRALINE HYDROCHLORIDE
  23. Axonics Implant [Concomitant]
  24. DIETARY SUPPLEMENT [Concomitant]
     Active Substance: DIETARY SUPPLEMENT
  25. VITAMIN D [Concomitant]
     Active Substance: VITAMIN D NOS
  26. FISH OIL [Concomitant]
     Active Substance: FISH OIL
  27. B 12 [Concomitant]

REACTIONS (4)
  - Product dispensing error [None]
  - Incorrect dose administered [None]
  - Product dispensing error [None]
  - Product use issue [None]

NARRATIVE: CASE EVENT DATE: 20241125
